FAERS Safety Report 6775495-9 (Version None)
Quarter: 2010Q2

REPORT INFORMATION
  Report Type: 
  Country: None (occurrence: None)
  Receive Date: 20100617
  Receipt Date: 20100607
  Transmission Date: 20101027
  Serious: Yes (Other)
  Sender: FDA-Public Use
  Company Number: JP-BRISTOL-MYERS SQUIBB COMPANY-15136781

PATIENT
  Age: 60 Year
  Sex: Female

DRUGS (7)
  1. CYCLOPHOSPHAMIDE [Suspect]
     Indication: LYMPHOMA
     Dosage: 480MG/BODY IN CYCLE 1.REDUCED TO 350MG/BODY FROM CYCLE 2 TOTAL 8 CYCLE UNTILL NOV02.
     Dates: start: 20020401
  2. BLEOMYCIN SULFATE [Suspect]
     Indication: LYMPHOMA
     Dosage: 14MG/BODY ON DAY 1 OF CYCLE 1. TOTAL 8 CYCLE UNTILL NOV02.
     Dates: start: 20020401
  3. VINCRISTINE SULFATE [Suspect]
     Indication: LYMPHOMA
     Dosage: 2MG/BODY IN CYCLE 1.REDUCED TO 1.5MG/BODY FROM CYCLE 2 TOTAL 8 CYCLE UNTILL NOV02
     Dates: start: 20020401
  4. RITUXIMAB [Suspect]
     Indication: LYMPHOMA
     Dosage: 500MG/BODY ADDED FROM CYCLE 3.ADM 5 CYCLE UNTIL NOV02.
  5. PIRARUBICIN [Suspect]
     Indication: LYMPHOMA
     Dosage: 40MG/BODY IN CYCLE 1.REDUCED TO 30MG/BODY FROM CYCLE 2 TOTAL 8 CYCLE UNTILL NOV02.
     Dates: start: 20020401
  6. PREDNISOLONE [Suspect]
     Indication: LYMPHOMA
     Dosage: 55MG/BODY ON DAYS 1-6 OF CYCLE 1. TOTAL 8 CYCLE UNTILL NOV02.
     Dates: start: 20020401
  7. PROCARBAZINE [Suspect]
     Indication: LYMPHOMA
     Dosage: 150MG/BODY ON DAYS 1-10 OF CYCLE 1. TOTAL 8 CYCLE UNTIL NOV02.
     Dates: start: 20020401

REACTIONS (3)
  - BONE MARROW FAILURE [None]
  - HERPES ZOSTER [None]
  - HYPOGAMMAGLOBULINAEMIA [None]
